FAERS Safety Report 6523960-1 (Version None)
Quarter: 2009Q4

REPORT INFORMATION
  Report Type: 
  Country: None (occurrence: None)
  Receive Date: 20091231
  Receipt Date: 20091228
  Transmission Date: 20100525
  Serious: Yes (Hospitalization)
  Sender: FDA-Public Use
  Company Number: US-BRISTOL-MYERS SQUIBB COMPANY-14913503

PATIENT
  Age: 89 Year
  Sex: Female

DRUGS (1)
  1. COUMADIN [Suspect]
     Indication: BLOOD DISORDER
     Dosage: STOPPED IN 2008 AND RESTARTED AND STOPPED AGAIN

REACTIONS (2)
  - ABASIA [None]
  - THROMBOSIS [None]
